FAERS Safety Report 9101712 (Version 1)
Quarter: 2013Q1

REPORT INFORMATION
  Report Type: Spontaneous
  Country: US (occurrence: US)
  Receive Date: 20130218
  Receipt Date: 20130218
  Transmission Date: 20140127
  Serious: No
  Sender: FDA-Public Use
  Company Number: US-009507513-1302USA004030

PATIENT
  Age: 19 Year
  Sex: Male

DRUGS (2)
  1. ISENTRESS [Suspect]
     Indication: HIV INFECTION
     Dosage: UNK
     Route: 048
     Dates: start: 201202
  2. KALETRA [Concomitant]

REACTIONS (3)
  - Drug administration error [Unknown]
  - No adverse event [Unknown]
  - Drug resistance [Unknown]
